FAERS Safety Report 25466247 (Version 1)
Quarter: 2025Q2

REPORT INFORMATION
  Report Type: Report from Study
  Country: BR (occurrence: BR)
  Receive Date: 20250623
  Receipt Date: 20250623
  Transmission Date: 20250717
  Serious: Yes (Hospitalization)
  Sender: BIOVITRUM
  Company Number: BR-AstraZeneca-CH-00891833A

PATIENT
  Sex: Female
  Weight: 8.5 kg

DRUGS (6)
  1. PALIVIZUMAB [Suspect]
     Active Substance: PALIVIZUMAB
     Indication: Product used for unknown indication
     Route: 065
     Dates: end: 20240217
  2. PALIVIZUMAB [Suspect]
     Active Substance: PALIVIZUMAB
     Route: 065
     Dates: end: 20240529
  3. PALIVIZUMAB [Suspect]
     Active Substance: PALIVIZUMAB
     Route: 065
     Dates: end: 20240626
  4. BECLOMETHASONE DIPROPIONATE [Concomitant]
     Active Substance: BECLOMETHASONE DIPROPIONATE
     Indication: Product used for unknown indication
     Route: 048
  5. FERROUS SULFATE [Concomitant]
     Active Substance: FERROUS SULFATE
     Indication: Product used for unknown indication
     Route: 048
  6. AD TIL [Concomitant]
     Indication: Product used for unknown indication

REACTIONS (6)
  - Influenza [Recovering/Resolving]
  - Respiratory disorder [Recovering/Resolving]
  - Cough [Recovering/Resolving]
  - Weight increased [Unknown]
  - Asthma [Unknown]
  - Weight decreased [Unknown]

NARRATIVE: CASE EVENT DATE: 20240101
